FAERS Safety Report 8080160-4 (Version None)
Quarter: 2012Q1

REPORT INFORMATION
  Report Type: 
  Country: None (occurrence: None)
  Receive Date: 20120124
  Receipt Date: 20120105
  Transmission Date: 20120608
  Serious: Yes (Death)
  Sender: FDA-Public Use
  Company Number: ADR-5005-045

PATIENT
  Age: 35 Day

DRUGS (3)
  1. NEVIRAPINE [Suspect]
     Indication: ACQUIRED IMMUNODEFICIENCY SYNDROME
     Dosage: 200 MG/DAY + ORAL
     Route: 048
     Dates: start: 20030219
  2. LAMIVUDINE (EPZICOM, EPZ) [Concomitant]
  3. ABACAVIR [Concomitant]

REACTIONS (2)
  - ABORTION SPONTANEOUS [None]
  - MATERNAL DRUGS AFFECTING FOETUS [None]
